FAERS Safety Report 16860599 (Version 1)
Quarter: 2019Q3

REPORT INFORMATION
  Report Type: Spontaneous
  Country: US (occurrence: US)
  Receive Date: 20190805
  Receipt Date: 20190805
  Transmission Date: 20191005
  Serious: Yes (Other)
  Sender: FDA-Public Use
  Company Number: None

PATIENT

DRUGS (6)
  1. FISH OIL [Concomitant]
     Active Substance: FISH OIL
  2. VITAMIN D [Concomitant]
     Active Substance: VITAMIN D NOS
  3. TRP/BLUR RELIEF [HOMEOPATHICS] [Suspect]
     Active Substance: HOMEOPATHICS
     Indication: VISION BLURRED
     Dosage: ?          OTHER DOSE:1 TO 3 DROPS; SEVERAL TIMES A DAY?
     Route: 047
     Dates: start: 20181201, end: 20190719
  4. VITAMIN E [Concomitant]
     Active Substance: .ALPHA.-TOCOPHEROL
  5. CAL MAG ZINC [Concomitant]
  6. VITAMIN B COMPLEX [Concomitant]
     Active Substance: CYANOCOBALAMIN\DEXPANTHENOL\NIACINAMIDE\PYRIDOXINE HYDROCHLORIDE\RIBOFLAVIN 5^-PHOSPHATE SODIUM\THIAMINE HYDROCHLORIDE\VITAMIN B COMPLEX

REACTIONS (3)
  - Burning sensation [None]
  - Tooth disorder [None]
  - Eye pain [None]

NARRATIVE: CASE EVENT DATE: 20190103
